FAERS Safety Report 4866291-8 (Version None)
Quarter: 2005Q4

REPORT INFORMATION
  Report Type: 
  Country: None (occurrence: None)
  Receive Date: 20051221
  Receipt Date: 20051206
  Transmission Date: 20060501
  Serious: Yes (Other)
  Sender: FDA-Public Use
  Company Number: 2005BI011870

PATIENT
  Age: 79 Year
  Sex: Female

DRUGS (8)
  1. AVONEX [Suspect]
     Indication: MULTIPLE SCLEROSIS
     Dosage: 30 UG; QW; IM
     Route: 030
     Dates: start: 20011101
  2. EFFEXOR [Concomitant]
  3. XANAX [Concomitant]
  4. LIPITOR [Concomitant]
  5. FOSAMAX [Concomitant]
  6. ASPIRIN [Concomitant]
  7. TUMS [Concomitant]
  8. MULTI-VITAMIN [Concomitant]

REACTIONS (3)
  - EYE DISORDER [None]
  - MALIGNANT MELANOMA [None]
  - VISUAL ACUITY REDUCED [None]
